FAERS Safety Report 5828301-0 (Version None)
Quarter: 2008Q3

REPORT INFORMATION
  Report Type: 
  Country: None (occurrence: None)
  Receive Date: 20080724
  Receipt Date: 20080711
  Transmission Date: 20090109
  Serious: Yes (Hospitalization)
  Sender: FDA-Public Use
  Company Number: THYM-1000731

PATIENT
  Sex: Male

DRUGS (4)
  1. THYMOGLOBULIN [Suspect]
     Indication: KIDNEY TRANSPLANT REJECTION
     Dosage: 1.25 MG/KG, QD, INTRAVENOUS; 0.625 MG/KG, ONCE, INTRAVENOUS
     Route: 042
     Dates: start: 20080101, end: 20080101
  2. THYMOGLOBULIN [Suspect]
     Indication: KIDNEY TRANSPLANT REJECTION
     Dosage: 1.25 MG/KG, QD, INTRAVENOUS; 0.625 MG/KG, ONCE, INTRAVENOUS
     Route: 042
     Dates: start: 20080101, end: 20080101
  3. CORTICOIDS (CORTICOIDS) [Concomitant]
  4. MYCOPHENOLATE MOFETIL [Concomitant]

REACTIONS (5)
  - ESCHERICHIA BACTERAEMIA [None]
  - FEBRILE NEUTROPENIA [None]
  - GASTRIC HAEMORRHAGE [None]
  - LEUKOPENIA [None]
  - THROMBOCYTOPENIA [None]
